FAERS Safety Report 21795505 (Version 5)
Quarter: 2024Q4

REPORT INFORMATION
  Report Type: Report from Study
  Country: US (occurrence: US)
  Receive Date: 20221229
  Receipt Date: 20241223
  Transmission Date: 20250115
  Serious: Yes (Other)
  Sender: TAKEDA
  Company Number: US-TAKEDA-US202030049

PATIENT
  Age: 39 Year
  Sex: Female

DRUGS (3)
  1. HUMAN IMMUNOGLOBULIN G [Suspect]
     Active Substance: HUMAN IMMUNOGLOBULIN G
     Indication: Primary immunodeficiency syndrome
     Dosage: UNK
  2. HUMAN IMMUNOGLOBULIN G [Suspect]
     Active Substance: HUMAN IMMUNOGLOBULIN G
     Indication: Immunodeficiency common variable
     Dosage: 5 GRAM
  3. HUMAN IMMUNOGLOBULIN G [Suspect]
     Active Substance: HUMAN IMMUNOGLOBULIN G
     Dosage: 6 GRAM

REACTIONS (17)
  - Atypical pneumonia [Recovering/Resolving]
  - Sjogren^s syndrome [Unknown]
  - Systemic lupus erythematosus [Unknown]
  - Fatigue [Unknown]
  - Infection [Unknown]
  - Food allergy [Recovering/Resolving]
  - Irritable bowel syndrome [Unknown]
  - Platelet count abnormal [Unknown]
  - Frustration tolerance decreased [Unknown]
  - Nasal ulcer [Unknown]
  - Stomatitis [Unknown]
  - Epistaxis [Unknown]
  - Asthenia [Unknown]
  - Anxiety [Unknown]
  - Hypersensitivity [Unknown]
  - Myalgia [Unknown]
  - COVID-19 [Recovered/Resolved]

NARRATIVE: CASE EVENT DATE: 20240520
